FAERS Safety Report 23205525 (Version 2)
Quarter: 2023Q4

REPORT INFORMATION
  Report Type: Spontaneous
  Country: CN (occurrence: CN)
  Receive Date: 20231120
  Receipt Date: 20231121
  Transmission Date: 20240110
  Serious: Yes (Other)
  Sender: FDA-Public Use
  Company Number: CN-PFIZER INC-PV202300184719

PATIENT
  Age: 73 Year
  Sex: Male
  Weight: 47 kg

DRUGS (10)
  1. VORICONAZOLE [Suspect]
     Active Substance: VORICONAZOLE
     Indication: Aspergillus infection
     Dosage: 400 MG, TWICE ON DAY 1 OF ADMINISTRATION
     Route: 048
     Dates: start: 20220820, end: 20220820
  2. VORICONAZOLE [Suspect]
     Active Substance: VORICONAZOLE
     Dosage: 200 MG TWICE A DAY
     Route: 048
     Dates: start: 20220821, end: 20220826
  3. VORICONAZOLE [Suspect]
     Active Substance: VORICONAZOLE
     Dosage: 150 MG, 2X/DAY
     Route: 048
     Dates: start: 20220827, end: 2022
  4. VORICONAZOLE [Suspect]
     Active Substance: VORICONAZOLE
     Dosage: 100 MG, 2X/DAY
     Route: 048
     Dates: start: 2022
  5. TACROLIMUS [Suspect]
     Active Substance: TACROLIMUS
     Indication: Transplant rejection
     Dosage: 2.5 MG TWICE A DAY
     Route: 048
     Dates: start: 2021, end: 20220823
  6. TACROLIMUS [Suspect]
     Active Substance: TACROLIMUS
     Dosage: 0.5 MG, 1X/DAY
     Dates: start: 20220826, end: 20220827
  7. TACROLIMUS [Suspect]
     Active Substance: TACROLIMUS
     Dosage: 0.5 MG, 1X/DAY
     Dates: start: 20220828
  8. PREDNISONE [Concomitant]
     Active Substance: PREDNISONE
     Indication: Transplant rejection
     Dosage: 5 MG ONCE A DAY
     Route: 048
  9. GLICLAZIDE [Concomitant]
     Active Substance: GLICLAZIDE
     Indication: Diabetes mellitus
     Dosage: 80 MG THREE TIMES A DAY
     Route: 048
  10. LINAGLIPTIN [Concomitant]
     Active Substance: LINAGLIPTIN
     Indication: Diabetes mellitus
     Dosage: 5 MG ONCE A DAY
     Route: 048

REACTIONS (2)
  - Labelled drug-drug interaction medication error [Recovered/Resolved]
  - Acute kidney injury [Recovered/Resolved]

NARRATIVE: CASE EVENT DATE: 20220820
